FAERS Safety Report 5531285-6 (Version None)
Quarter: 2007Q4

REPORT INFORMATION
  Report Type: 
  Country: None (occurrence: None)
  Receive Date: 20071120
  Receipt Date: 20071107
  Transmission Date: 20080405
  Serious: Yes (Hospitalization)
  Sender: FDA-Public Use
  Company Number: THYM-11592

PATIENT
  Age: 66 Year
  Sex: Female

DRUGS (9)
  1. THYMOGLOBULIN [Suspect]
     Indication: RENAL TRANSPLANT
     Dates: start: 20070323
  2. PANTOZOL. MFR: BYK-GULDEN LOMBERG GMBH [Concomitant]
  3. BERLTHYROX. MFR: BERLIN-CHEMIE AG [Concomitant]
  4. RESTEX 62.5 [Concomitant]
  5. BICANORM [Concomitant]
  6. CIPROBAY. MFR: BAYER [Concomitant]
  7. CELLCEPT. MFR: ROCHE [Concomitant]
  8. PROGRAF [Concomitant]
  9. URBASON. MFR: HOECHST PHARMACEUTICALS, INCORPORATED [Concomitant]

REACTIONS (4)
  - HAEMODIALYSIS [None]
  - KIDNEY TRANSPLANT REJECTION [None]
  - RENAL CORTICAL NECROSIS [None]
  - TREATMENT FAILURE [None]
